FAERS Safety Report 18686069 (Version 1)
Quarter: 2020Q4

REPORT INFORMATION
  Report Type: Report from Study
  Country: None (occurrence: US)
  Receive Date: 20201231
  Receipt Date: 20201231
  Transmission Date: 20210114
  Serious: Yes (Other)
  Sender: FDA-Public Use
  Company Number: US-ABBVIE-20K-163-3712417-00

PATIENT
  Sex: Male

DRUGS (1)
  1. VENETOCLAX. [Suspect]
     Active Substance: VENETOCLAX
     Indication: DIFFUSE LARGE B-CELL LYMPHOMA
     Dosage: TOOK 8 TABLETS BY MOUTH EVERY DAY QUANTITY OF 240
     Route: 048

REACTIONS (4)
  - Amputation [Unknown]
  - Catheter placement [Unknown]
  - Surgery [Unknown]
  - Off label use [Unknown]
